FAERS Safety Report 5907333-8 (Version None)
Quarter: 2008Q4

REPORT INFORMATION
  Report Type: 
  Country: None (occurrence: None)
  Receive Date: 20081003
  Receipt Date: 20080925
  Transmission Date: 20090506
  Serious: Yes (Death, Hospitalization)
  Sender: FDA-Public Use
  Company Number: US-AVENTIS-200816402US

PATIENT
  Sex: Male

DRUGS (2)
  1. LANTUS [Suspect]
     Route: 058
     Dates: start: 20030101, end: 20051023
  2. NOVOPEN [Concomitant]
     Dosage: DOSE: UNK
     Dates: end: 20051023

REACTIONS (5)
  - DEATH [None]
  - DIABETES MELLITUS INADEQUATE CONTROL [None]
  - GANGRENE [None]
  - WEIGHT DECREASED [None]
  - WOUND [None]
